FAERS Safety Report 4449078-X (Version None)
Quarter: 2004Q3

REPORT INFORMATION
  Report Type: 
  Country: None (occurrence: None)
  Receive Date: 20040910
  Receipt Date: 20040902
  Transmission Date: 20050211
  Serious: Yes (Life-Threatening)
  Sender: FDA-Public Use
  Company Number: 2004GB01891

PATIENT
  Age: 54 Year
  Sex: Female

DRUGS (7)
  1. MARCAINE [Suspect]
     Indication: EPIDURAL ANAESTHESIA
     Dates: start: 20040713, end: 20040713
  2. ISOFLURANE [Suspect]
  3. PIRITON [Concomitant]
  4. PROPOFOL [Concomitant]
  5. ATRACURIUM BESYLATE [Concomitant]
  6. CEFUROXIME [Concomitant]
  7. METRONIDAZOLE [Concomitant]

REACTIONS (4)
  - HEPATIC NECROSIS [None]
  - HEPATITIS [None]
  - INTERNATIONAL NORMALISED RATIO INCREASED [None]
  - PROTHROMBIN TIME PROLONGED [None]
